FAERS Safety Report 25237134 (Version 1)
Quarter: 2025Q2

REPORT INFORMATION
  Report Type: Spontaneous
  Country: TR (occurrence: TR)
  Receive Date: 20250425
  Receipt Date: 20250425
  Transmission Date: 20250716
  Serious: Yes (Other)
  Sender: ABBVIE
  Company Number: TR-ABBVIE-6242400

PATIENT
  Age: 6 Year
  Sex: Female

DRUGS (3)
  1. PRED FORTE [Suspect]
     Active Substance: PREDNISOLONE ACETATE
     Indication: Postoperative care
     Route: 061
     Dates: start: 202504, end: 202504
  2. PRED FORTE [Suspect]
     Active Substance: PREDNISOLONE ACETATE
     Route: 061
     Dates: start: 202502, end: 202504
  3. PRED FORTE [Suspect]
     Active Substance: PREDNISOLONE ACETATE
     Route: 061
     Dates: start: 202504

REACTIONS (7)
  - Device dislocation [Not Recovered/Not Resolved]
  - Eye pruritus [Recovered/Resolved]
  - Eye irritation [Recovered/Resolved]
  - Visual impairment [Recovered/Resolved]
  - Eye pain [Recovered/Resolved]
  - Liquid product physical issue [Unknown]
  - Product colour issue [Unknown]

NARRATIVE: CASE EVENT DATE: 20250101
